FAERS Safety Report 9200748 (Version 3)
Quarter: 2013Q2

REPORT INFORMATION
  Report Type: Spontaneous
  Country: US (occurrence: US)
  Receive Date: 20130401
  Receipt Date: 20130405
  Transmission Date: 20140414
  Serious: No
  Sender: FDA-Public Use
  Company Number: US-009507513-1303USA013071

PATIENT
  Age: 19 Year
  Sex: Female
  Weight: 95.24 kg

DRUGS (1)
  1. NEXPLANON [Suspect]
     Dosage: IMPLANTED FOR 3 YEARS
     Route: 059
     Dates: start: 20130115

REACTIONS (4)
  - Asthma [Unknown]
  - Metrorrhagia [Unknown]
  - Vaginal discharge [Unknown]
  - Gestational diabetes [Unknown]
